FAERS Safety Report 4633334-6 (Version None)
Quarter: 2005Q2

REPORT INFORMATION
  Report Type: 
  Country: None (occurrence: None)
  Receive Date: 20050412
  Receipt Date: 20050325
  Transmission Date: 20051028
  Serious: Yes (Hospitalization)
  Sender: FDA-Public Use
  Company Number: 106315ISR

PATIENT
  Age: 73 Year
  Sex: Female

DRUGS (2)
  1. ETOPOSIDE [Suspect]
     Indication: GASTROINTESTINAL NEOPLASM
     Dosage: 85 MILLIGRAM INTRAVENOUS (NOS)
     Route: 042
     Dates: end: 20050203
  2. CARBOPLATIN [Concomitant]

REACTIONS (2)
  - DIARRHOEA [None]
  - MYOCARDIAL INFARCTION [None]
